FAERS Safety Report 14989979 (Version 1)
Quarter: 2018Q2

REPORT INFORMATION
  Report Type: Spontaneous
  Country: US (occurrence: US)
  Receive Date: 20180608
  Receipt Date: 20180608
  Transmission Date: 20180711
  Serious: No
  Sender: FDA-Public Use
  Company Number: US-ROCHE-1990254

PATIENT
  Sex: Female

DRUGS (1)
  1. ACTEMRA [Suspect]
     Active Substance: TOCILIZUMAB
     Indication: ANAEMIA
     Route: 058

REACTIONS (3)
  - Decreased appetite [Unknown]
  - Photosensitivity reaction [Unknown]
  - Rash [Unknown]
